FAERS Safety Report 7603093-3 (Version None)
Quarter: 2011Q3

REPORT INFORMATION
  Report Type: 
  Country: None (occurrence: None)
  Receive Date: 20110712
  Receipt Date: 20110624
  Transmission Date: 20111222
  Serious: No
  Sender: FDA-Public Use
  Company Number: US-B.I. PHARMACEUTICALS,INC./RIDGEFIELD-2011-BP-16306BP

PATIENT
  Age: 79 Year
  Sex: Female

DRUGS (7)
  1. LOSARTAN POTASSIUM [Concomitant]
     Indication: HYPERTENSION
     Dates: start: 20010101
  2. LESCOL [Concomitant]
     Indication: BLOOD CHOLESTEROL INCREASED
     Dates: start: 20060101
  3. ACEBUTOLOL [Concomitant]
     Indication: HYPERTENSION
     Dates: start: 20010101
  4. METFORMIN HCL [Concomitant]
     Indication: TYPE 2 DIABETES MELLITUS
     Dates: start: 20060101
  5. PRADAXA [Suspect]
     Indication: ATRIAL FIBRILLATION
     Dosage: 300 MG
     Route: 048
     Dates: start: 20110616
  6. NORVASC [Concomitant]
     Indication: HYPERTENSION
     Dates: start: 20010101
  7. PAXIL [Concomitant]
     Indication: DEPRESSION
     Dates: start: 20110301

REACTIONS (1)
  - ASTHENIA [None]
